FAERS Safety Report 12925643 (Version 1)
Quarter: 2016Q4

REPORT INFORMATION
  Report Type: Spontaneous
  Country: BH (occurrence: BH)
  Receive Date: 20161109
  Receipt Date: 20161109
  Transmission Date: 20170207
  Serious: Yes (Other)
  Sender: FDA-Public Use
  Company Number: BH-APOTEX-2016AP014519

PATIENT
  Age: 19 Year
  Sex: Female

DRUGS (2)
  1. PAXIL CR [Suspect]
     Active Substance: PAROXETINE HYDROCHLORIDE
     Indication: DEPRESSION
     Dosage: 12.5 MG, 1D
     Route: 065
     Dates: start: 201608
  2. PAXIL CR [Suspect]
     Active Substance: PAROXETINE HYDROCHLORIDE
     Indication: ANXIETY
     Dosage: 25 MG, 1D
     Route: 048
     Dates: end: 20160907

REACTIONS (3)
  - Fall [Recovered/Resolved]
  - Abasia [Recovered/Resolved]
  - Condition aggravated [Recovered/Resolved]
